FAERS Safety Report 5906673-6 (Version None)
Quarter: 2008Q3

REPORT INFORMATION
  Report Type: 
  Country: None (occurrence: None)
  Receive Date: 20080930
  Receipt Date: 20080919
  Transmission Date: 20090109
  Serious: Yes (Hospitalization)
  Sender: FDA-Public Use
  Company Number: TCI2008A04831

PATIENT
  Age: 72 Year
  Sex: Male

DRUGS (6)
  1. ACTOS [Suspect]
     Indication: DIABETES MELLITUS
     Dosage: 30 MG (30 MG, 1 D) , PER ORAL
     Route: 048
  2. GLUFAST (MITIGLINIDE CALCIUM HYDRATE) [Suspect]
     Dosage: PER ORAL
     Route: 048
  3. BASEN (VOGLIBOSE) [Concomitant]
  4. CANDESARTAN CILEXETIL [Concomitant]
  5. CARVEDILOL [Concomitant]
  6. ASPIRIN [Concomitant]

REACTIONS (2)
  - ANOREXIA [None]
  - MYOCARDIAL INFARCTION [None]
